FAERS Safety Report 11696003 (Version 9)
Quarter: 2018Q1

REPORT INFORMATION
  Report Type: Report from Study
  Country: ES (occurrence: ES)
  Receive Date: 20151104
  Receipt Date: 20180227
  Transmission Date: 20180508
  Serious: Yes (Hospitalization, Other)
  Sender: FDA-Public Use
  Company Number: PHHO2015ES018226

PATIENT
  Age: 80 Year
  Sex: Male
  Weight: 90.3 kg

DRUGS (2)
  1. TRAMETINIB [Suspect]
     Active Substance: TRAMETINIB
     Indication: METASTATIC MALIGNANT MELANOMA
     Dosage: 2 MG, QD
     Route: 048
     Dates: start: 20130228
  2. DABRAFENIB [Suspect]
     Active Substance: DABRAFENIB
     Indication: METASTATIC MALIGNANT MELANOMA
     Dosage: 300 MG, QD
     Route: 048
     Dates: start: 20130228

REACTIONS (7)
  - Actinic keratosis [Recovered/Resolved]
  - Basal cell carcinoma [Recovered/Resolved]
  - Basal cell carcinoma [Recovered/Resolved]
  - Bowen^s disease [Recovered/Resolved]
  - Squamous cell carcinoma [Recovered/Resolved]
  - Squamous cell carcinoma [Recovered/Resolved]
  - Second primary malignancy [Recovered/Resolved]

NARRATIVE: CASE EVENT DATE: 20150901
